FAERS Safety Report 4783393-5 (Version None)
Quarter: 2005Q3

REPORT INFORMATION
  Report Type: 
  Country: None (occurrence: None)
  Receive Date: 20050929
  Receipt Date: 20050922
  Transmission Date: 20060218
  Serious: Yes (Other)
  Sender: FDA-Public Use
  Company Number: 2005UW14196

PATIENT
  Age: 79 Year
  Sex: Female

DRUGS (8)
  1. SEROQUEL [Suspect]
     Route: 048
  2. ACETAMINOPHEN [Concomitant]
  3. AVELOX [Concomitant]
     Route: 048
  4. LAXATIVES [Concomitant]
  5. METOCLOPRAMIDE [Concomitant]
  6. MULTI-VITAMINS [Concomitant]
  7. OLANZAPINE [Concomitant]
  8. THIAMINE [Concomitant]

REACTIONS (2)
  - DEEP VEIN THROMBOSIS [None]
  - MOBILITY DECREASED [None]
